FAERS Safety Report 6022914-1 (Version None)
Quarter: 2008Q4

REPORT INFORMATION
  Report Type: 
  Country: None (occurrence: None)
  Receive Date: 20081223
  Receipt Date: 20081211
  Transmission Date: 20090506
  Serious: Yes (Hospitalization)
  Sender: FDA-Public Use
  Company Number: 005069

PATIENT
  Age: 73 Year
  Sex: Female

DRUGS (4)
  1. PLETAL [Suspect]
     Indication: LACUNAR INFARCTION
     Dosage: 50 MG, BID
     Route: 048
     Dates: start: 20040927
  2. LOSARTAN POTASSIUM [Concomitant]
  3. LOXONIN (LOXOPROFEN SODIUM) [Concomitant]
  4. DEPAS (ETIZOLAM) [Concomitant]

REACTIONS (5)
  - ANAEMIA [None]
  - ANOREXIA [None]
  - HYPOPROTEINAEMIA [None]
  - OESOPHAGEAL VARICES HAEMORRHAGE [None]
  - VARICES OESOPHAGEAL [None]
